FAERS Safety Report 5294549-X (Version None)
Quarter: 2007Q2

REPORT INFORMATION
  Report Type: 
  Country: None (occurrence: None)
  Receive Date: 20070409
  Receipt Date: 20070409
  Transmission Date: 20071010
  Serious: Yes (Other)
  Sender: FDA-Public Use
  Company Number: None

PATIENT
  Age: 52 Year
  Sex: Female
  Weight: 63.5036 kg

DRUGS (1)
  1. LOVASTATIN [Suspect]
     Indication: BLOOD CHOLESTEROL INCREASED
     Dosage: 1 TABLET DAILY
     Dates: start: 20070309, end: 20070321

REACTIONS (8)
  - ABASIA [None]
  - ARTHRALGIA [None]
  - BURSITIS [None]
  - CRYING [None]
  - DYSSTASIA [None]
  - IMPAIRED WORK ABILITY [None]
  - INSOMNIA [None]
  - PAIN IN EXTREMITY [None]
